FAERS Safety Report 25432500 (Version 1)
Quarter: 2025Q2

REPORT INFORMATION
  Report Type: Report from Study
  Country: US (occurrence: US)
  Receive Date: 20250613
  Receipt Date: 20250613
  Transmission Date: 20250717
  Serious: Yes (Hospitalization)
  Sender: EMD SERONO INC
  Company Number: US-Merck Healthcare KGaA-2025029068

PATIENT
  Age: 64 Year
  Sex: Female

DRUGS (1)
  1. REBIF [Suspect]
     Active Substance: INTERFERON BETA-1A
     Indication: Multiple sclerosis
     Dates: start: 2009

REACTIONS (12)
  - Cardiac failure [Unknown]
  - Carbon dioxide increased [Unknown]
  - Somnolence [Unknown]
  - Hospitalisation [Unknown]
  - Gait disturbance [Unknown]
  - Urinary incontinence [Unknown]
  - Anal incontinence [Unknown]
  - Asthenia [Unknown]
  - Feeling of despair [Unknown]
  - Decreased interest [Unknown]
  - Depressed mood [Unknown]
  - Intentional product misuse [Unknown]
